FAERS Safety Report 5122053-8 (Version None)
Quarter: 2006Q4

REPORT INFORMATION
  Report Type: 
  Country: None (occurrence: None)
  Receive Date: 20061006
  Receipt Date: 20060926
  Transmission Date: 20070319
  Serious: Yes (Hospitalization)
  Sender: FDA-Public Use
  Company Number: US-JNJFOC-20060906778

PATIENT
  Sex: Female
  Weight: 76.2 kg

DRUGS (5)
  1. MOTRIN [Suspect]
     Indication: PAIN
  2. MOTRIN [Suspect]
     Indication: MENSTRUAL DISORDER
     Dosage: AS NEEDED, INITIATED MANY YEARS AGO
  3. ROBAXIN [Concomitant]
     Indication: MUSCLE SPASMS
  4. REGLAN [Concomitant]
     Indication: DRUG USE FOR UNKNOWN INDICATION
  5. LORAZEPAM [Concomitant]
     Indication: DRUG USE FOR UNKNOWN INDICATION

REACTIONS (2)
  - INNER EAR DISORDER [None]
  - VERTIGO [None]
